FAERS Safety Report 6991258-3 (Version None)
Quarter: 2010Q3

REPORT INFORMATION
  Report Type: 
  Country: None (occurrence: None)
  Receive Date: 20100916
  Receipt Date: 20080902
  Transmission Date: 20110219
  Serious: No
  Sender: FDA-Public Use
  Company Number: US-WYE-H05853408

PATIENT
  Sex: Female

DRUGS (5)
  1. PREMARIN [Suspect]
     Route: 048
     Dates: start: 19840101
  2. PREMARIN [Suspect]
     Route: 048
     Dates: end: 20080201
  3. CITRACAL [Concomitant]
  4. PRAVACHOL [Concomitant]
  5. PREMARIN [Suspect]
     Indication: VULVOVAGINAL DRYNESS
     Dosage: 0.5 APPLICATOR TWICE A WEEK
     Route: 067
     Dates: start: 20080801

REACTIONS (9)
  - CHLOASMA [None]
  - DRUG INEFFECTIVE [None]
  - INAPPROPRIATE SCHEDULE OF DRUG ADMINISTRATION [None]
  - MUSCLE SPASMS [None]
  - NAUSEA [None]
  - OEDEMA PERIPHERAL [None]
  - RASH PRURITIC [None]
  - VAGINAL HAEMORRHAGE [None]
  - VAGINAL INFECTION [None]
